FAERS Safety Report 19744455 (Version 1)
Quarter: 2021Q3

REPORT INFORMATION
  Report Type: Spontaneous
  Country: NL (occurrence: NL)
  Receive Date: 20210825
  Receipt Date: 20210825
  Transmission Date: 20211014
  Serious: Yes (Other)
  Sender: FDA-Public Use
  Company Number: NL-TEVA-2021-NL-1944353

PATIENT
  Sex: Female
  Weight: 66 kg

DRUGS (3)
  1. VENLAFAXINE CAPSULE MGA 150MG / BRAND NAME NOT SPECIFIED [Suspect]
     Active Substance: VENLAFAXINE HYDROCHLORIDE
     Indication: DEPRESSION
  2. ETHINYLESTRADIOL/LEVONORGESTREL TABLET 20/100UG / BRAND NAME NOT SPECI [Concomitant]
     Active Substance: ETHINYL ESTRADIOL\LEVONORGESTREL
     Dosage: 20/100 UG (MICROGRAM) ,THERAPY START DATE AND END DATE : ASKU
  3. VENLAFAXINE CAPSULE MGA 150MG / BRAND NAME NOT SPECIFIED [Suspect]
     Active Substance: VENLAFAXINE HYDROCHLORIDE
     Indication: ANXIETY
     Dosage: 150 MILLIGRAM DAILY; THERAPY END DATE : ASKU
     Dates: start: 201803

REACTIONS (2)
  - Apnoea [Recovered/Resolved]
  - Snoring [Recovered/Resolved]
